FAERS Safety Report 10136395 (Version 1)
Quarter: 2014Q2

REPORT INFORMATION
  Report Type: Spontaneous
  Country: NL (occurrence: NL)
  Receive Date: 20140429
  Receipt Date: 20140429
  Transmission Date: 20141212
  Serious: Yes (Life-Threatening)
  Sender: FDA-Public Use
  Company Number: NL-JNJFOC-20140413991

PATIENT
  Age: 27 Year
  Sex: Male
  Weight: 80 kg

DRUGS (1)
  1. RISPERIDONE [Suspect]
     Indication: AUTISM
     Route: 048
     Dates: start: 20131118, end: 20140124

REACTIONS (4)
  - Suicidal ideation [Recovered/Resolved]
  - Disinhibition [Recovered/Resolved]
  - Apathy [Recovered/Resolved]
  - Off label use [Unknown]
